FAERS Safety Report 8808409 (Version 2)
Quarter: 2012Q4

REPORT INFORMATION
  Report Type: Spontaneous
  Country: US (occurrence: None)
  Receive Date: 20120920
  Receipt Date: 20121001
  Transmission Date: 20130627
  Serious: Yes (Hospitalization)
  Sender: FDA-Public Use
  Company Number: JPI-P-025137

PATIENT
  Age: 47 Year
  Sex: Female
  Weight: 120.2 kg

DRUGS (11)
  1. XYREM (500 MILLIGRAM/MILLILITERS, SOLUTION) (SODIUM OXYBATE) [Suspect]
     Indication: FIBROMYALGIA
     Route: 048
     Dates: start: 20100914
  2. XYREM (500 MILLIGRAM/MILLILITERS, SOLUTION) (SODIUM OXYBATE) [Suspect]
     Indication: FIBROMYALGIA
     Route: 048
  3. LISINOPRIL [Concomitant]
  4. BUPROPION HYDROCHLORIDE [Concomitant]
  5. LOSARTAN [Concomitant]
  6. MODAFINIL [Concomitant]
  7. FLUTICASONE W/SALMETEROL [Concomitant]
  8. OMEPRAZOLE [Concomitant]
  9. ZOLPIDEM TARTRATE [Concomitant]
  10. CETIRIZINE [Concomitant]
  11. VALACICLOVIR [Concomitant]

REACTIONS (1)
  - Renal cancer [None]
